FAERS Safety Report 10024470 (Version 1)
Quarter: 2014Q1

REPORT INFORMATION
  Report Type: Spontaneous
  Country: US (occurrence: US)
  Receive Date: 20140320
  Receipt Date: 20140320
  Transmission Date: 20141002
  Serious: No
  Sender: FDA-Public Use
  Company Number: US-PFIZER INC-2014076864

PATIENT
  Sex: 0

DRUGS (3)
  1. ADVIL ALLERGY AND CONGESTION RELIEF [Suspect]
     Indication: PAIN
     Dosage: 200 MG, EVERY NIGHT
  2. ADVIL ALLERGY AND CONGESTION RELIEF [Suspect]
     Indication: BACK PAIN
  3. ADVIL ALLERGY AND CONGESTION RELIEF [Suspect]
     Indication: SINUS HEADACHE

REACTIONS (2)
  - Nausea [Unknown]
  - Drug effect delayed [Unknown]
